FAERS Safety Report 5410921-9 (Version None)
Quarter: 2007Q3

REPORT INFORMATION
  Report Type: 
  Country: None (occurrence: None)
  Receive Date: 20070809
  Receipt Date: 20070809
  Transmission Date: 20080115
  Serious: Yes (Life-Threatening, Other)
  Sender: FDA-Public Use
  Company Number: None

PATIENT
  Age: 67 Year
  Sex: Male
  Weight: 124.2856 kg

DRUGS (1)
  1. AVANDIA [Suspect]
     Dosage: 8 MG ONE A DAY PO
     Route: 048
     Dates: start: 20060101, end: 20070201

REACTIONS (7)
  - ABASIA [None]
  - ASTHENIA [None]
  - CARDIAC FAILURE [None]
  - DYSPNOEA [None]
  - FLUID RETENTION [None]
  - MOOD SWINGS [None]
  - SKIN DISCOLOURATION [None]
